FAERS Safety Report 6001119-4 (Version None)
Quarter: 2008Q4

REPORT INFORMATION
  Report Type: 
  Country: None (occurrence: None)
  Receive Date: 20081215
  Receipt Date: 20071107
  Transmission Date: 20090506
  Serious: No
  Sender: FDA-Public Use
  Company Number: US-AMGEN-KDL247227

PATIENT
  Sex: Male

DRUGS (8)
  1. ENBREL [Suspect]
     Indication: RHEUMATOID ARTHRITIS
     Route: 058
     Dates: start: 20041201, end: 20070924
  2. FUROSEMIDE [Concomitant]
     Dates: start: 20050101
  3. TOPROL-XL [Concomitant]
     Dates: start: 19820101
  4. SYNTHROID [Concomitant]
     Dates: start: 19870101
  5. PREVACID [Concomitant]
     Dates: start: 19920101
  6. CASODEX (ASTRA ZENECA) [Concomitant]
     Dates: start: 20070901
  7. UNSPECIFIED MEDICATION [Concomitant]
     Dates: start: 20071001
  8. WARFARIN SODIUM [Concomitant]
     Dates: start: 20010101

REACTIONS (8)
  - BURNING SENSATION [None]
  - ERYTHEMA [None]
  - LOCAL SWELLING [None]
  - OROPHARYNGEAL PAIN [None]
  - PAIN [None]
  - PRURITUS [None]
  - RHEUMATOID ARTHRITIS [None]
  - SINUS CONGESTION [None]
